FAERS Safety Report 23841558 (Version 2)
Quarter: 2024Q2

REPORT INFORMATION
  Report Type: Spontaneous
  Country: US (occurrence: US)
  Receive Date: 20240510
  Receipt Date: 20240523
  Transmission Date: 20240715
  Serious: No
  Sender: FDA-Public Use
  Company Number: US-BRISTOL-MYERS SQUIBB COMPANY-2024-071999

PATIENT
  Age: 72 Year
  Sex: Male

DRUGS (1)
  1. SPRYCEL [Suspect]
     Active Substance: DASATINIB
     Indication: Chronic myeloid leukaemia
     Dosage: FREQUENCY: 2 TABLETS BY MOUTH ONCE DAILY IN THE MORNING/100 MG DAILY
     Route: 048
     Dates: start: 20240430

REACTIONS (2)
  - Diarrhoea [Unknown]
  - Fatigue [Unknown]
